FAERS Safety Report 9214949 (Version 5)
Quarter: 2014Q4

REPORT INFORMATION
  Report Type: Report from Study
  Country: JP (occurrence: JP)
  Receive Date: 20130405
  Receipt Date: 20141022
  Transmission Date: 20150529
  Serious: Yes (Disabling, Other)
  Sender: FDA-Public Use
  Company Number: JP-GLAXOSMITHKLINE-B0879572A

PATIENT
  Age: 47 Year
  Sex: Female
  Weight: 72 kg

DRUGS (22)
  1. AMARYL [Concomitant]
     Active Substance: GLIMEPIRIDE
     Route: 048
     Dates: start: 20130904
  2. VOGLIBOSE OD [Concomitant]
     Route: 048
  3. BASEN [Concomitant]
     Active Substance: VOGLIBOSE
     Route: 048
  4. AMARYL [Concomitant]
     Active Substance: GLIMEPIRIDE
     Route: 048
     Dates: end: 20130318
  5. CRESTOR [Concomitant]
     Active Substance: ROSUVASTATIN CALCIUM
     Route: 048
  6. RISPERDAL [Concomitant]
     Active Substance: RISPERIDONE
     Route: 048
     Dates: start: 20120402
  7. ELTROMBOPAG [Suspect]
     Active Substance: ELTROMBOPAG
     Indication: IMMUNE THROMBOCYTOPENIC PURPURA
     Route: 048
     Dates: start: 20120405, end: 20120411
  8. ELTROMBOPAG [Suspect]
     Active Substance: ELTROMBOPAG
     Route: 048
     Dates: start: 20120710, end: 20121001
  9. AMARYL [Concomitant]
     Active Substance: GLIMEPIRIDE
     Route: 048
     Dates: start: 20130319, end: 20130903
  10. ACTOS [Concomitant]
     Active Substance: PIOGLITAZONE HYDROCHLORIDE
     Route: 048
     Dates: end: 20130122
  11. LOSIZOPILON [Concomitant]
     Route: 048
  12. JANUVIA [Concomitant]
     Active Substance: SITAGLIPTIN PHOSPHATE
     Route: 048
     Dates: end: 20120904
  13. ACTOS [Concomitant]
     Active Substance: PIOGLITAZONE HYDROCHLORIDE
     Route: 048
     Dates: start: 20130123
  14. TAKEPRON [Concomitant]
     Active Substance: LANSOPRAZOLE
     Route: 048
     Dates: start: 20120403, end: 20130903
  15. ELTROMBOPAG [Suspect]
     Active Substance: ELTROMBOPAG
     Route: 048
     Dates: start: 20120501, end: 20120611
  16. ELTROMBOPAG [Suspect]
     Active Substance: ELTROMBOPAG
     Route: 048
     Dates: start: 20120612, end: 20120709
  17. TASMOLIN [Concomitant]
     Active Substance: BIPERIDEN
     Route: 048
  18. ELTROMBOPAG [Suspect]
     Active Substance: ELTROMBOPAG
     Route: 048
     Dates: start: 20120412, end: 20120418
  19. ELTROMBOPAG [Suspect]
     Active Substance: ELTROMBOPAG
     Route: 048
     Dates: start: 20120419, end: 20120430
  20. ELTROMBOPAG [Suspect]
     Active Substance: ELTROMBOPAG
     Route: 048
     Dates: start: 20121002
  21. JANUVIA [Concomitant]
     Active Substance: SITAGLIPTIN PHOSPHATE
     Route: 048
     Dates: start: 20120905
  22. MUCOSTA [Concomitant]
     Active Substance: REBAMIPIDE
     Route: 048
     Dates: start: 20120403, end: 20130903

REACTIONS (1)
  - Diabetes mellitus [Recovering/Resolving]

NARRATIVE: CASE EVENT DATE: 20120807
